FAERS Safety Report 19027610 (Version 1)
Quarter: 2021Q1

REPORT INFORMATION
  Report Type: Spontaneous
  Country: US (occurrence: US)
  Receive Date: 20210319
  Receipt Date: 20210319
  Transmission Date: 20210420
  Serious: No
  Sender: FDA-Public Use
  Company Number: US-ORGANON-O2103USA002160

PATIENT
  Sex: Female

DRUGS (1)
  1. DIPROLENE [Suspect]
     Active Substance: BETAMETHASONE DIPROPIONATE
     Dosage: UNK

REACTIONS (2)
  - No adverse event [Unknown]
  - Drug ineffective [Unknown]
